FAERS Safety Report 15563639 (Version 1)
Quarter: 2018Q4

REPORT INFORMATION
  Report Type: Spontaneous
  Country: US (occurrence: US)
  Receive Date: 20181029
  Receipt Date: 20181029
  Transmission Date: 20190205
  Serious: No
  Sender: FDA-Public Use
  Company Number: US-SA-2018SA296006

PATIENT
  Age: 68 Year
  Sex: Female

DRUGS (1)
  1. DULCOLAX PINK [Suspect]
     Active Substance: BISACODYL
     Indication: CONSTIPATION
     Dosage: 3 DF, HS
     Route: 048
     Dates: start: 20181019

REACTIONS (1)
  - Drug ineffective [Unknown]

NARRATIVE: CASE EVENT DATE: 20181020
